FAERS Safety Report 10636010 (Version 2)
Quarter: 2014Q4

REPORT INFORMATION
  Report Type: Spontaneous
  Country: JP (occurrence: JP)
  Receive Date: 20141205
  Receipt Date: 20141205
  Transmission Date: 20150529
  Serious: Yes (Other)
  Sender: FDA-Public Use
  Company Number: US-ASTRAZENECA-2014SE83492

PATIENT
  Age: 70 Year
  Sex: Male

DRUGS (5)
  1. BLOPRESS [Suspect]
     Active Substance: CANDESARTAN CILEXETIL
     Indication: HYPERTENSION
     Route: 048
     Dates: start: 20140922
  2. VOGLIBOSE [Concomitant]
     Active Substance: VOGLIBOSE
     Dosage: UNK
     Route: 048
  3. HALFDIGOXIN [Concomitant]
     Active Substance: DIGOXIN
     Dosage: UNK
     Route: 048
  4. PIOGLITAZONE [Concomitant]
     Active Substance: PIOGLITAZONE
     Dosage: UNK
     Route: 048
  5. WARFARIN POTASSIUM [Concomitant]
     Active Substance: WARFARIN POTASSIUM
     Dosage: UNK
     Route: 048

REACTIONS (1)
  - Erythema multiforme [Recovering/Resolving]

NARRATIVE: CASE EVENT DATE: 201410
